FAERS Safety Report 25374106 (Version 1)
Quarter: 2025Q2

REPORT INFORMATION
  Report Type: Spontaneous
  Country: FR (occurrence: FR)
  Receive Date: 20250529
  Receipt Date: 20250529
  Transmission Date: 20250716
  Serious: Yes (Other)
  Sender: GILEAD
  Company Number: None

PATIENT
  Age: 62 Year
  Sex: Female
  Weight: 72 kg

DRUGS (1)
  1. TRODELVY [Suspect]
     Active Substance: SACITUZUMAB GOVITECAN-HZIY
     Indication: Breast cancer metastatic
     Route: 042
     Dates: start: 20240502, end: 20240620

REACTIONS (2)
  - Agranulocytosis [Recovered/Resolved]
  - Urticaria [Recovered/Resolved]

NARRATIVE: CASE EVENT DATE: 20240627
